FAERS Safety Report 16099837 (Version 1)
Quarter: 2019Q1

REPORT INFORMATION
  Report Type: Spontaneous
  Country: US (occurrence: US)
  Receive Date: 20190321
  Receipt Date: 20190321
  Transmission Date: 20190418
  Serious: Yes (Death, Other)
  Sender: FDA-Public Use
  Company Number: US-LANNETT COMPANY, INC.-US-2019LAN000277

PATIENT
  Age: 11 Year
  Sex: Male

DRUGS (2)
  1. LIDOCAINE HYDROCHLORIDE. [Suspect]
     Active Substance: LIDOCAINE HYDROCHLORIDE
     Indication: WOUND TREATMENT
     Dosage: 177 ML, UNK
     Route: 061
  2. BENZALKONIUM CHLORIDE. [Suspect]
     Active Substance: BENZALKONIUM CHLORIDE
     Indication: WOUND TREATMENT
     Dosage: 177 ML, UNK
     Route: 061

REACTIONS (5)
  - Medication error [Fatal]
  - Accidental overdose [Fatal]
  - Seizure [Unknown]
  - Toxicity to various agents [Fatal]
  - Cardiac arrest [Fatal]

NARRATIVE: CASE EVENT DATE: 2017
